FAERS Safety Report 21568300 (Version 1)
Quarter: 2022Q4

REPORT INFORMATION
  Report Type: Spontaneous
  Country: GB (occurrence: None)
  Receive Date: 20221108
  Receipt Date: 20221108
  Transmission Date: 20230113
  Serious: Yes (Hospitalization)
  Sender: FDA-Public Use
  Company Number: GB-Merck Healthcare KGaA-9363776

PATIENT
  Sex: Female

DRUGS (3)
  1. AVELUMAB [Suspect]
     Active Substance: AVELUMAB
     Indication: Renal cell carcinoma
  2. AXITINIB [Suspect]
     Active Substance: AXITINIB
     Indication: Renal cell carcinoma
  3. AXITINIB [Suspect]
     Active Substance: AXITINIB

REACTIONS (1)
  - Gastrointestinal toxicity [Unknown]
